FAERS Safety Report 4427558-0 (Version None)
Quarter: 2004Q3

REPORT INFORMATION
  Report Type: 
  Country: None (occurrence: None)
  Receive Date: 20040812
  Receipt Date: 20040803
  Transmission Date: 20050211
  Serious: Yes (Other)
  Sender: FDA-Public Use
  Company Number: GBWYE945303AUG04

PATIENT
  Age: 30 Year
  Sex: Male

DRUGS (1)
  1. MINOCIN [Suspect]
     Indication: SKIN DISORDER
     Dosage: 100 MG2X PER 1 DAY
     Dates: start: 19900101

REACTIONS (1)
  - GASTRITIS [None]
